FAERS Safety Report 24174711 (Version 2)
Quarter: 2024Q3

REPORT INFORMATION
  Report Type: Report from Study
  Country: US (occurrence: US)
  Receive Date: 20240805
  Receipt Date: 20240906
  Transmission Date: 20241016
  Serious: No
  Sender: ALEXION PHARMACEUTICALS
  Company Number: US-AstraZeneca-CH-00674593A

PATIENT
  Sex: Female

DRUGS (1)
  1. ULTOMIRIS [Suspect]
     Active Substance: RAVULIZUMAB-CWVZ
     Indication: Myasthenia gravis
     Dosage: UNK
     Route: 041

REACTIONS (6)
  - Speech disorder [Unknown]
  - Eyelid ptosis [Unknown]
  - Dysphagia [Unknown]
  - Drooling [Unknown]
  - Weight increased [Unknown]
  - Inappropriate schedule of product administration [Unknown]
